FAERS Safety Report 6253168-9 (Version None)
Quarter: 2009Q2

REPORT INFORMATION
  Report Type: 
  Country: None (occurrence: None)
  Receive Date: 20090626
  Receipt Date: 20081014
  Transmission Date: 20091009
  Serious: Yes (Life-Threatening)
  Sender: FDA-Public Use
  Company Number: 591819

PATIENT
  Age: 45 Year
  Sex: Female
  Weight: 49.5 kg

DRUGS (2)
  1. XELODA [Suspect]
     Indication: COLON CANCER STAGE III
     Dosage: 1.5 GRAM   ORAL
     Route: 048
     Dates: start: 20081010
  2. OXALIPLATIN [Concomitant]

REACTIONS (2)
  - ACUTE MYOCARDIAL INFARCTION [None]
  - ARTERIOSPASM CORONARY [None]
